FAERS Safety Report 10080763 (Version 2)
Quarter: 2014Q2

REPORT INFORMATION
  Report Type: Spontaneous
  Country: US (occurrence: US)
  Receive Date: 20140416
  Receipt Date: 20140611
  Transmission Date: 20141212
  Serious: Yes (Hospitalization, Other)
  Sender: FDA-Public Use
  Company Number: US-BAYER-2014-054762

PATIENT
  Age: 23 Year
  Sex: Female

DRUGS (5)
  1. YASMIN [Suspect]
  2. HISTINEX D [Concomitant]
     Dosage: SYRUP
  3. AMOXICILLIN [Concomitant]
     Dosage: 500 MG, UNK
  4. IBUPROFEN [Concomitant]
     Dosage: 600 MG, UNK
  5. SYNTHROID [Concomitant]

REACTIONS (2)
  - Pulmonary embolism [Recovering/Resolving]
  - Deep vein thrombosis [None]
